FAERS Safety Report 23627610 (Version 2)
Quarter: 2024Q1

REPORT INFORMATION
  Report Type: Report from Study
  Country: PY (occurrence: PY)
  Receive Date: 20240313
  Receipt Date: 20240314
  Transmission Date: 20240410
  Serious: Yes (Other)
  Sender: FDA-Public Use
  Company Number: PY-TEVA-VS-3167485

PATIENT
  Age: 53 Year
  Sex: Female
  Weight: 82 kg

DRUGS (7)
  1. COPAXONE [Suspect]
     Active Substance: GLATIRAMER ACETATE
     Indication: Multiple sclerosis
     Dosage: TIME INTERVAL: 0.33333333 WEEKS
     Route: 058
     Dates: start: 20211011
  2. Lysine clonixinate w/ Propinox (Dolofenal compuesto) [Concomitant]
     Dosage: 125/ 10 MG AS REQUIRED
     Route: 048
  3. Omeprazol (Gastropax NF) [Concomitant]
     Route: 048
  4. Amoxicillin (Contex Novo) [Concomitant]
     Route: 048
  5. Domperidone (Nausefin) [Concomitant]
     Route: 048
  6. Loperamid (Diaxin NF) [Concomitant]
     Route: 048
  7. IBUPROFEN [Concomitant]
     Active Substance: IBUPROFEN
     Route: 048

REACTIONS (11)
  - Peritonitis [Unknown]
  - Abdominal discomfort [Unknown]
  - Tachycardia [Not Recovered/Not Resolved]
  - Diarrhoea [Unknown]
  - Back pain [Recovered/Resolved]
  - Arthralgia [Recovered/Resolved]
  - Chills [Recovered/Resolved]
  - Homicide [Recovered/Resolved]
  - Nausea [Unknown]
  - Somnolence [Not Recovered/Not Resolved]
  - Helicobacter infection [Unknown]

NARRATIVE: CASE EVENT DATE: 20240201
